FAERS Safety Report 6714210-1 (Version None)
Quarter: 2010Q2

REPORT INFORMATION
  Report Type: 
  Country: None (occurrence: None)
  Receive Date: 20100506
  Receipt Date: 20100504
  Transmission Date: 20101027
  Serious: Yes (Hospitalization)
  Sender: FDA-Public Use
  Company Number: CA-CEPHALON-2010002550

PATIENT
  Sex: Male
  Weight: 112 kg

DRUGS (8)
  1. TREANDA [Suspect]
     Indication: NON-HODGKIN'S LYMPHOMA
     Dates: start: 20091124, end: 20100414
  2. RITUXAN [Suspect]
     Indication: NON-HODGKIN'S LYMPHOMA
     Dates: start: 20091124, end: 20100413
  3. ZOFRAN [Concomitant]
     Indication: ANTIEMETIC SUPPORTIVE CARE
     Dates: start: 20091124
  4. MAXERAN [Concomitant]
     Indication: NAUSEA
     Dates: start: 20091125
  5. TYLENOL-500 [Concomitant]
     Indication: PROPHYLACTIC CHEMOTHERAPY
     Dates: start: 20091124
  6. BENADRYL [Concomitant]
     Indication: PROPHYLACTIC CHEMOTHERAPY
     Dates: start: 20091124
  7. SOLU-CORTEF [Concomitant]
     Indication: PROPHYLACTIC CHEMOTHERAPY
     Dates: start: 20091122
  8. ZANTAC [Concomitant]
     Indication: DYSPEPSIA
     Dates: start: 20091126

REACTIONS (8)
  - ATELECTASIS [None]
  - DISEASE PROGRESSION [None]
  - MANTLE CELL LYMPHOMA [None]
  - NON-HODGKIN'S LYMPHOMA [None]
  - PANCREATITIS [None]
  - PNEUMONIA [None]
  - PULMONARY EMBOLISM [None]
  - SPLENOMEGALY [None]
